FAERS Safety Report 9587776 (Version 3)
Quarter: 2014Q2

REPORT INFORMATION
  Report Type: Spontaneous
  Country: AU (occurrence: AU)
  Receive Date: 20131003
  Receipt Date: 20140401
  Transmission Date: 20141212
  Serious: Yes (Other)
  Sender: FDA-Public Use
  Company Number: AU-ABBVIE-13P-008-1152016-00

PATIENT
  Sex: Male

DRUGS (3)
  1. LUCRIN [Suspect]
     Indication: PRODUCT USED FOR UNKNOWN INDICATION
     Dates: start: 2002
  2. LUCRIN [Suspect]
     Dates: start: 20130323
  3. LUCRIN [Suspect]
     Dates: start: 20140108

REACTIONS (5)
  - Prostate cancer metastatic [Recovering/Resolving]
  - Pain [Recovering/Resolving]
  - Immobile [Recovering/Resolving]
  - Asthenia [Recovering/Resolving]
  - Mobility decreased [Recovering/Resolving]
